FAERS Safety Report 10264891 (Version 1)
Quarter: 2014Q2

REPORT INFORMATION
  Report Type: Spontaneous
  Country: US (occurrence: None)
  Receive Date: 20140530
  Receipt Date: 20140530
  Transmission Date: 20141212
  Serious: Yes (Other)
  Sender: FDA-Public Use
  Company Number: 2013035852

PATIENT
  Age: 56 Year
  Sex: Female
  Weight: 87.09 kg

DRUGS (18)
  1. HIZENTRA (IMMUNOGLOBULIN HUMAN NORMAL) [Suspect]
     Indication: IMMUNODEFICIENCY
     Dosage: 1X/WEEK, MULTIPLE SITES OVER 1-2 HOURS SUBCUTANEOUS
     Route: 058
     Dates: start: 20130501, end: 20130501
  2. MEDROL (METHYLPREDNISOLONE) [Concomitant]
  3. CLONAZEPAM [Concomitant]
  4. FLUCONAZOLE [Concomitant]
  5. ADVAIR (SERETIDE / 01420901/) [Concomitant]
  6. OXYCODONE [Concomitant]
  7. DIPHENHYDRAMINE [Concomitant]
  8. EPI PEN (EPINEPHRINE) [Concomitant]
  9. ASTELIN (AZELASTINE HYDROCHLORIDE) [Concomitant]
  10. AMLODIPINE [Concomitant]
  11. TRAZODONE [Concomitant]
  12. SPIRIVA [Concomitant]
  13. NATURAL LAXATIVE (LAXATIVES) [Concomitant]
  14. XOPENEX NEB SOL (LEVOSALBUTAMOL) [Concomitant]
  15. XOPENEX INHALER (LEVOSALBUTAMOL) [Concomitant]
  16. MORPHINE SULFATE [Concomitant]
  17. DEXILANT (DEXLANSOPRAZOLE) (ALL OTHER THERAPEUTIC PRODUCTS) [Concomitant]
  18. ESTROVEN (ESTROVEN /02150801/) [Concomitant]

REACTIONS (4)
  - Throat tightness [None]
  - Cough [None]
  - Feeling abnormal [None]
  - Dizziness [None]
